FAERS Safety Report 8400060-7 (Version None)
Quarter: 2012Q2

REPORT INFORMATION
  Report Type: 
  Country: None (occurrence: None)
  Receive Date: 20120531
  Receipt Date: 20120518
  Transmission Date: 20120825
  Serious: Yes (Death)
  Sender: FDA-Public Use
  Company Number: IT-CELGENEUS-083-21880-12042816

PATIENT
  Sex: Male

DRUGS (7)
  1. OXYCODONE HYDROCHLORIDE [Concomitant]
     Route: 065
  2. PREDNISONE TAB [Concomitant]
     Indication: LYMPHOMA
     Route: 065
  3. FINASTERIDE [Concomitant]
     Route: 065
  4. METHIMAZOLE [Concomitant]
     Route: 065
  5. REVLIMID [Suspect]
     Indication: DIFFUSE LARGE B-CELL LYMPHOMA
     Dosage: 25 MILLIGRAM
     Route: 048
     Dates: start: 20101005, end: 20101115
  6. PROPRANOLOL [Concomitant]
     Route: 065
  7. PANTOPRAZOLE [Concomitant]
     Route: 065

REACTIONS (1)
  - DIFFUSE LARGE B-CELL LYMPHOMA [None]
